FAERS Safety Report 16861360 (Version 1)
Quarter: 2019Q4

REPORT INFORMATION
  Report Type: Spontaneous
  Country: US (occurrence: US)
  Receive Date: 20190927
  Receipt Date: 20190927
  Transmission Date: 20200122
  Serious: Yes (Other)
  Sender: FDA-Public Use
  Company Number: None

PATIENT
  Age: 66 Year
  Sex: Male
  Weight: 119.25 kg

DRUGS (1)
  1. OPDIVO [Suspect]
     Active Substance: NIVOLUMAB
     Indication: DUCTAL ADENOCARCINOMA OF PANCREAS
     Dates: start: 20170728, end: 20190927

REACTIONS (1)
  - Immune-mediated adverse reaction [None]

NARRATIVE: CASE EVENT DATE: 20190926
